FAERS Safety Report 4762408-4 (Version None)
Quarter: 2005Q3

REPORT INFORMATION
  Report Type: 
  Country: None (occurrence: None)
  Receive Date: 20050901
  Receipt Date: 20050624
  Transmission Date: 20060218
  Serious: Yes (Other)
  Sender: FDA-Public Use
  Company Number: 19220

PATIENT
  Age: 68 Year
  Sex: Male
  Weight: 93.441 kg

DRUGS (7)
  1. PACLITAXEL [Suspect]
     Indication: OESOPHAGEAL CANCER METASTATIC
     Dates: start: 20050407, end: 20050512
  2. CARBOPLATIN [Concomitant]
  3. NEULASTA [Concomitant]
  4. PROCRIT [Concomitant]
  5. OXYCODONE HCL [Concomitant]
  6. ADVIL [Concomitant]
  7. SENNA [Concomitant]

REACTIONS (7)
  - ANAEMIA [None]
  - CONSTIPATION [None]
  - DYSGEUSIA [None]
  - MYALGIA [None]
  - NEUROPATHY [None]
  - PAIN [None]
  - RENAL IMPAIRMENT [None]
